FAERS Safety Report 8561100-8 (Version None)
Quarter: 2012Q3

REPORT INFORMATION
  Report Type: 
  Country: None (occurrence: None)
  Receive Date: 20120802
  Receipt Date: 20120508
  Transmission Date: 20120928
  Serious: No
  Sender: FDA-Public Use
  Company Number: US-BRISTOL-MYERS SQUIBB COMPANY-16577306

PATIENT
  Age: 62 Year
  Sex: Male

DRUGS (10)
  1. REYATAZ [Suspect]
     Route: 048
  2. VIREAD [Concomitant]
  3. EPIVIR [Concomitant]
     Dosage: 1 DF = EPIVIR 10MG/ML 1 TEASPOONFUL.
  4. ZIAGEN [Concomitant]
  5. LOPRESSOR [Concomitant]
  6. SULFAMETHOXAZOLE AND TRIMETHOPRIM [Concomitant]
     Dosage: 1 DF = 1/2 DAILY
  7. VITAMIN B COMPLEX CAP [Concomitant]
  8. MIRTAZAPINE [Concomitant]
     Dosage: AT BEDTIME
  9. PRAVASTATIN [Concomitant]
  10. AMLODIPINE [Concomitant]

REACTIONS (2)
  - TREATMENT NONCOMPLIANCE [None]
  - DYSPHAGIA [None]
